FAERS Safety Report 8065714-3 (Version None)
Quarter: 2011Q4

REPORT INFORMATION
  Report Type: 
  Country: None (occurrence: None)
  Receive Date: 20111221
  Receipt Date: 20111011
  Transmission Date: 20120403
  Serious: Yes (Hospitalization)
  Sender: FDA-Public Use
  Company Number: PHEH2011US06305

PATIENT
  Age: 31 Year
  Sex: Female
  Weight: 64.9 kg

DRUGS (4)
  1. EXJADE [Suspect]
     Indication: SICKLE CELL ANAEMIA
     Dosage: 1250 MG, DAILY, ORAL
     Route: 048
     Dates: start: 20071019
  2. COUMADIN [Concomitant]
  3. PENICILLIN V POTASSIUM (PHENOXHYMETHYLPENICILLIN POTASSIUM) [Concomitant]
  4. FOLIC ACID [Concomitant]

REACTIONS (1)
  - SICKLE CELL ANAEMIA WITH CRISIS [None]
